FAERS Safety Report 19966497 (Version 3)
Quarter: 2021Q4

REPORT INFORMATION
  Report Type: Report from Study
  Country: GB (occurrence: GB)
  Receive Date: 20211019
  Receipt Date: 20211223
  Transmission Date: 20220303
  Serious: Yes (Other)
  Sender: FDA-Public Use
  Company Number: GB-CELLTRION INC.-2021GB014188

PATIENT

DRUGS (68)
  1. TRASTUZUMAB [Suspect]
     Active Substance: TRASTUZUMAB
     Indication: Breast cancer
     Dosage: 600 MG, EVERY 3 WEEKS (DOSE FORM: 231)
     Route: 058
     Dates: start: 20180216, end: 20190812
  2. PACLITAXEL [Suspect]
     Active Substance: PACLITAXEL
     Indication: Breast cancer
     Dosage: 156 MG
     Route: 042
     Dates: start: 20180216, end: 20180713
  3. ADO-TRASTUZUMAB EMTANSINE [Suspect]
     Active Substance: ADO-TRASTUZUMAB EMTANSINE
     Indication: Breast cancer
     Dosage: 400 MG/KG, EVERY 3 WEEKS (DOSE FORM: 230)
     Route: 042
     Dates: start: 20190906, end: 20210715
  4. ADO-TRASTUZUMAB EMTANSINE [Suspect]
     Active Substance: ADO-TRASTUZUMAB EMTANSINE
     Dosage: 320 MG, EVERY 3 WEEKS (DOSE FORM: 230)
     Route: 042
     Dates: start: 20210716
  5. CALCIUM CARBONATE\CHOLECALCIFEROL [Concomitant]
     Active Substance: CALCIUM CARBONATE\CHOLECALCIFEROL
     Dosage: UNK (DOSE FORM: 245)
     Route: 048
     Dates: start: 20180224
  6. AMITRIPTYLINE [Concomitant]
     Active Substance: AMITRIPTYLINE
     Dosage: 10 MG (DOSE FORM: 245)
     Route: 048
     Dates: start: 20180130
  7. BENZYDAMINE [Concomitant]
     Active Substance: BENZYDAMINE
     Dosage: 10 MG, QD (DOSE FORM: 245)
     Route: 048
     Dates: start: 20191018
  8. BENZYDAMINE [Concomitant]
     Active Substance: BENZYDAMINE
     Dosage: 15 ML, AS NECESSARY
     Route: 048
     Dates: start: 20191018
  9. BETAMETHASONE VALERATE [Concomitant]
     Active Substance: BETAMETHASONE VALERATE
     Dosage: UNK (DOSE FORM: 17)
     Route: 061
     Dates: start: 20201104
  10. BISACODYL [Concomitant]
     Active Substance: BISACODYL
     Dosage: 5 MG, QD (DOSE FORM: 245)
     Route: 048
     Dates: start: 20180320
  11. CHLORHEXIDINE [Concomitant]
     Active Substance: CHLORHEXIDINE
     Dosage: UNK, AS NECESSARY
     Route: 048
     Dates: start: 20180503
  12. CHLORHEXIDINE GLUCONATE [Concomitant]
     Active Substance: CHLORHEXIDINE GLUCONATE
     Dosage: 0.2 %
     Route: 065
  13. CHLORPHENIRAMINE MALEATE [Concomitant]
     Active Substance: CHLORPHENIRAMINE MALEATE
     Dosage: 10 MG
     Route: 042
     Dates: start: 20180216, end: 20180713
  14. CLARITHROMYCIN [Concomitant]
     Active Substance: CLARITHROMYCIN
     Dosage: 1000 MG, QD (DOSE FORM: 245)
     Route: 048
     Dates: start: 20200817, end: 20200824
  15. CLOTRIMAZOLE [Concomitant]
     Active Substance: CLOTRIMAZOLE
     Dosage: UNK, AS NECESSARY
     Route: 048
     Dates: start: 20180625, end: 2018
  16. COCODAMOL [Concomitant]
     Active Substance: ACETAMINOPHEN\CODEINE PHOSPHATE
     Dosage: DOSE: 1 TABLET (DOSE FORM: 245)
     Route: 048
     Dates: start: 20180130
  17. CHOLECALCIFEROL [Concomitant]
     Active Substance: CHOLECALCIFEROL
     Dosage: 1 DF, EVERY 2 DAYS
     Route: 048
     Dates: start: 20180222, end: 2018
  18. DERMOL [Concomitant]
     Active Substance: BENZALKONIUM CHLORIDE\CHLORHEXIDINE HYDROCHLORIDE\ISOPROPYL MYRISTATE\PARAFFIN
     Dosage: UNK, AS NECESSARY (DOSE FORM: 17)
     Route: 061
     Dates: start: 20201203
  19. DEXAMETHASONE [Concomitant]
     Active Substance: DEXAMETHASONE
     Dosage: 2 MG, QD (DOSE FORM: 245)
     Route: 048
     Dates: start: 20180131
  20. DEXAMETHASONE [Concomitant]
     Active Substance: DEXAMETHASONE
     Dosage: 8 MG
     Route: 042
     Dates: start: 20180216, end: 20180713
  21. DEXAMETHASONE [Concomitant]
     Active Substance: DEXAMETHASONE
     Dosage: 8 MG, QD (DOSE FORM: 245)
     Route: 048
     Dates: start: 20180110, end: 20180130
  22. DEXAMETHASONE [Concomitant]
     Active Substance: DEXAMETHASONE
     Dosage: 4 MG, QD (DOSE FORM: 245)
     Route: 048
     Dates: start: 20191114, end: 201912
  23. DEXAMETHASONE [Concomitant]
     Active Substance: DEXAMETHASONE
     Dosage: 2 MG, QD (DOSE FORM: 245)
     Route: 048
     Dates: start: 20180315
  24. DIAZEPAM [Concomitant]
     Active Substance: DIAZEPAM
     Dosage: 10 MG, QD (DOSE FORM: 245)
     Route: 048
     Dates: start: 20200206
  25. DIAZEPAM [Concomitant]
     Active Substance: DIAZEPAM
     Dosage: 5 MG, QD (DOSE FORM: 245)
     Route: 048
     Dates: start: 20200205
  26. DOCUSATE [Concomitant]
     Active Substance: DOCUSATE
     Dosage: 200 MG, QD (DOSE FORM: 245)
     Route: 048
     Dates: start: 20180222
  27. DOXYCYCLINE [Concomitant]
     Active Substance: DOXYCYCLINE
     Dosage: 100 MG, QD
     Route: 048
     Dates: start: 20210730, end: 20210813
  28. ESCITALOPRAM [Concomitant]
     Active Substance: ESCITALOPRAM OXALATE
     Dosage: UNK, QD (DOSE FORM: 245)
     Route: 048
     Dates: start: 20200109, end: 20200204
  29. ESCITALOPRAM [Concomitant]
     Active Substance: ESCITALOPRAM OXALATE
     Dosage: 20 MG (DOSE FORM: 245)
     Route: 048
     Dates: start: 20200108
  30. FEXOFENADINE [Concomitant]
     Active Substance: FEXOFENADINE HYDROCHLORIDE
     Dosage: 1000 MG, QD (DOSE FORM: 245)
     Route: 048
     Dates: start: 20200817, end: 20200824
  31. FLUCLOXACILLIN [Concomitant]
     Active Substance: FLUCLOXACILLIN
     Indication: Cellulitis
     Dosage: 2000 MG, QD (DOSE FORM: 245)
     Route: 048
     Dates: start: 20180509, end: 20180516
  32. FLUCLOXACILLIN [Concomitant]
     Active Substance: FLUCLOXACILLIN
     Dosage: 2000 MG, QD (DOSE FORM: 5)
     Route: 048
     Dates: start: 20201113, end: 20201120
  33. FLUCLOXACILLIN [Concomitant]
     Active Substance: FLUCLOXACILLIN
     Dosage: 2000 MG, QD (DOSE FORM: 5)
     Route: 048
     Dates: start: 20200731, end: 20200807
  34. FLUCLOXACILLIN [Concomitant]
     Active Substance: FLUCLOXACILLIN
     Dosage: 4 G, QD (DOSE FORM: 5)
     Route: 048
     Dates: start: 202103, end: 202104
  35. FLUCLOXACILLIN [Concomitant]
     Active Substance: FLUCLOXACILLIN
     Dosage: 2000 MG, QD (DOSE FORM: 5)
     Route: 048
     Dates: start: 20200311, end: 20200318
  36. FLUCLOXACILLIN [Concomitant]
     Active Substance: FLUCLOXACILLIN
     Dosage: 2000 MG, QD (DOSE FORM: 5)
     Route: 048
     Dates: start: 20200813, end: 20200820
  37. FUROSEMIDE [Concomitant]
     Active Substance: FUROSEMIDE
     Dosage: 80 MG, QD (DOSE FORM: 245)
     Route: 048
     Dates: start: 20200409
  38. FUROSEMIDE [Concomitant]
     Active Substance: FUROSEMIDE
     Dosage: UNK, QD (DOSE FORM: 245)
     Route: 048
     Dates: start: 20180209, end: 20180219
  39. FUROSEMIDE [Concomitant]
     Active Substance: FUROSEMIDE
     Dosage: 40 MG, QD (DOSE FORM: 245)
     Route: 048
     Dates: start: 20180219
  40. HYDROCORTISONE [Concomitant]
     Active Substance: HYDROCORTISONE
     Dosage: 10 MG, QD
     Route: 048
     Dates: start: 20191018, end: 20191022
  41. HYDROMOL EMOLLIENT [Concomitant]
     Indication: Dry skin
     Dosage: UNK
     Route: 061
     Dates: start: 20210811
  42. IBUPROFEN [Concomitant]
     Active Substance: IBUPROFEN
     Dosage: UNK, AS NECESSARY (DOSE FORM: 245)
     Route: 048
     Dates: start: 201912
  43. POLYETHYLENE GLYCOL 3350\POTASSIUM CHLORIDE\SODIUM BICARBONATE\SODIUM [Concomitant]
     Active Substance: POLYETHYLENE GLYCOL 3350\POTASSIUM CHLORIDE\SODIUM BICARBONATE\SODIUM CHLORIDE
     Dosage: EVERY 2 DAYS
     Route: 048
     Dates: start: 20210810
  44. LIDOCAINE [Concomitant]
     Active Substance: LIDOCAINE
     Dosage: UNK, QD
     Route: 061
     Dates: start: 20180222, end: 2018
  45. LORATADINE [Concomitant]
     Active Substance: LORATADINE
     Dosage: 10 MG (DOSE FORM: 245)
     Route: 048
     Dates: start: 20200731
  46. LORAZEPAM [Concomitant]
     Active Substance: LORAZEPAM
     Dosage: 1 MG, AS NECESSARY (DOSE FORM: 245)
     Route: 048
     Dates: start: 201908
  47. LORAZEPAM [Concomitant]
     Active Substance: LORAZEPAM
     Dosage: 1 MG, AS NECESSARY (DOSE FORM: 245)
     Route: 048
     Dates: start: 20200604
  48. LORAZEPAM [Concomitant]
     Active Substance: LORAZEPAM
     Dosage: 0.5 MG, AS NECESSARY (DOSE FORM: 245)
     Route: 048
     Dates: start: 20180205, end: 20190805
  49. POLYETHYLENE GLYCOLS [Concomitant]
     Active Substance: POLYETHYLENE GLYCOLS
     Dosage: UNK, QD
     Route: 048
     Dates: start: 20180205, end: 2018
  50. METOCLOPRAMIDE [Concomitant]
     Active Substance: METOCLOPRAMIDE
     Dosage: 10 MG, AS  NECESSARY (DOSE FORM: 245)
     Route: 048
     Dates: start: 20180216, end: 20180713
  51. METOCLOPRAMIDE [Concomitant]
     Active Substance: METOCLOPRAMIDE
     Dosage: 10 MG, AS  NECESSARY (DOSE FORM: 245)
     Route: 048
     Dates: start: 20180714
  52. MIRTAZAPINE [Concomitant]
     Active Substance: MIRTAZAPINE
     Dosage: 15 MG, QD (DOSE FORM: 245)
     Route: 048
     Dates: start: 20200205
  53. MORPHINE [Concomitant]
     Active Substance: MORPHINE
     Dosage: UNK, AS NECESSARY
     Route: 048
     Dates: start: 20180205
  54. NAPROXEN [Concomitant]
     Active Substance: NAPROXEN
     Dosage: 500 MG, EVERY 2 DAYS
     Route: 048
     Dates: end: 2019
  55. NYSTATIN [Concomitant]
     Active Substance: NYSTATIN
     Dosage: 4 ML, QD
     Route: 048
     Dates: start: 20200311
  56. OMEPRAZOLE [Concomitant]
     Active Substance: OMEPRAZOLE
     Indication: Prophylaxis
     Dosage: 40 MG, QD (DOSE FORM: 245)
     Route: 048
     Dates: start: 20180226
  57. MORPHINE SULFATE [Concomitant]
     Active Substance: MORPHINE SULFATE
     Dosage: 10 MG
     Route: 048
     Dates: start: 201802
  58. ACETAMINOPHEN [Concomitant]
     Active Substance: ACETAMINOPHEN
     Dosage: 1 G, AS NECESSARY (DOSE FORM: 113)
     Route: 048
  59. RANITIDINE [Concomitant]
     Active Substance: RANITIDINE
     Dosage: 50 MG
     Route: 042
     Dates: start: 20180216, end: 20180713
  60. TRAMADOL [Concomitant]
     Active Substance: TRAMADOL
     Dosage: UNK (END DATE: ??-???-2018)
     Route: 065
     Dates: end: 2018
  61. TRIMOVATE [Concomitant]
     Active Substance: CLOBETASONE BUTYRATE\NYSTATIN\OXYTETRACYCLINE CALCIUM
     Dosage: UNK, QD (DOSE FORM: 17)
     Route: 061
     Dates: start: 20200810
  62. YELLOW SOFT PARAFFIN [Concomitant]
     Dosage: UNK, AS NECESSARY
     Route: 061
     Dates: start: 20201203
  63. ZOLEDRONIC ACID [Concomitant]
     Active Substance: ZOLEDRONIC ACID
     Dosage: 3 MG, Q4WEEKS
     Route: 042
     Dates: start: 20180124, end: 20180615
  64. ZOLEDRONIC ACID [Concomitant]
     Active Substance: ZOLEDRONIC ACID
     Dosage: 3 MG, Q3MONTHS (DOSE FORM: 293)
     Route: 042
     Dates: start: 20181126
  65. ZOLPIDEM [Concomitant]
     Active Substance: ZOLPIDEM TARTRATE
     Dosage: 10 MG, QD (DOSE FORM: 245)
     Route: 048
     Dates: start: 20180219, end: 2019
  66. ZOPICLONE [Concomitant]
     Active Substance: ZOPICLONE
     Dosage: 7.5 MG, QD (DOSE FORM: 245)
     Route: 048
     Dates: start: 20180219
  67. SODIUM CHLORIDE [Concomitant]
     Active Substance: SODIUM CHLORIDE
     Dosage: 10 ML
     Route: 042
     Dates: start: 20211014
  68. LIDOCAINE HYDROCHLORIDE [Concomitant]
     Active Substance: LIDOCAINE HYDROCHLORIDE
     Indication: Analgesic therapy
     Dosage: 700 MG, EVERY 12 HOURS
     Route: 061

REACTIONS (5)
  - Neuropathy peripheral [Not Recovered/Not Resolved]
  - Platelet count decreased [Recovered/Resolved]
  - Procedural pain [Recovered/Resolved]
  - Lower respiratory tract infection [Recovered/Resolved]
  - Off label use [Unknown]

NARRATIVE: CASE EVENT DATE: 20210701
